FAERS Safety Report 11992975 (Version 1)
Quarter: 2016Q1

REPORT INFORMATION
  Report Type: Spontaneous
  Country: US (occurrence: US)
  Receive Date: 20160203
  Receipt Date: 20160203
  Transmission Date: 20160526
  Serious: Yes (Other)
  Sender: FDA-Public Use
  Company Number: US-UCBSA-2015013381

PATIENT
  Age: 27 Year
  Sex: Male

DRUGS (2)
  1. KEPPRA [Suspect]
     Active Substance: LEVETIRACETAM
     Indication: SEIZURE
     Dosage: 500 MG, 2X/DAY (BID),STRENGTH:500 MG
  2. KEPPRA [Suspect]
     Active Substance: LEVETIRACETAM
     Dosage: 40 TABLETS 500MG STRENGTH, TOTAL: 20000MG
     Dates: start: 20150226, end: 2015

REACTIONS (2)
  - Eosinophil count increased [Recovered/Resolved]
  - Overdose [Unknown]

NARRATIVE: CASE EVENT DATE: 20150226
